FAERS Safety Report 4700551-6 (Version None)
Quarter: 2005Q2

REPORT INFORMATION
  Report Type: 
  Country: None (occurrence: None)
  Receive Date: 20050627
  Receipt Date: 20050627
  Transmission Date: 20051028
  Serious: Yes (Life-Threatening, Hospitalization)
  Sender: FDA-Public Use
  Company Number: None

PATIENT
  Age: 44 Year
  Sex: Female
  Weight: 56.246 kg

DRUGS (4)
  1. OXYCODONE HCL [Suspect]
     Indication: PAIN
     Dosage: 12-14 MGS    3-4 HOURS  PARENTERAL
     Route: 051
     Dates: start: 20030201, end: 20050621
  2. XANAX [Concomitant]
  3. ESTRADERM [Concomitant]
  4. ZOFRAN [Concomitant]

REACTIONS (12)
  - ASTHENIA [None]
  - BACK PAIN [None]
  - CHROMATURIA [None]
  - FATIGUE [None]
  - HYPERTENSION [None]
  - INFLUENZA LIKE ILLNESS [None]
  - MYALGIA [None]
  - PHARMACEUTICAL PRODUCT COMPLAINT [None]
  - PYREXIA [None]
  - SINUS TACHYCARDIA [None]
  - URINE ODOUR ABNORMAL [None]
  - VISUAL DISTURBANCE [None]
